FAERS Safety Report 21321917 (Version 1)
Quarter: 2022Q3

REPORT INFORMATION
  Report Type: Spontaneous
  Country: IN (occurrence: IN)
  Receive Date: 20220912
  Receipt Date: 20220912
  Transmission Date: 20221027
  Serious: Yes (Hospitalization)
  Sender: FDA-Public Use
  Company Number: IN-LUPIN PHARMACEUTICALS INC.-2022-10878

PATIENT
  Age: 32 Year
  Sex: Male

DRUGS (7)
  1. METFORMIN [Suspect]
     Active Substance: METFORMIN HYDROCHLORIDE
     Indication: Glucose tolerance impaired
     Dosage: 500 MG, BID TABLET
     Route: 065
  2. CETIRIZINE [Suspect]
     Active Substance: CETIRIZINE HYDROCHLORIDE
     Indication: Antiallergic therapy
     Dosage: 10 MG, BID TABLET
     Route: 065
  3. AMOXICILLIN\CLAVULANATE POTASSIUM [Suspect]
     Active Substance: AMOXICILLIN\CLAVULANATE POTASSIUM
     Indication: Antibiotic therapy
     Dosage: UNK, TAB. AMOXICILLIN+POTASSIUM CLAVULANATE 625MG
     Route: 065
  4. CHLORPHENIRAMINE MALEATE [Suspect]
     Active Substance: CHLORPHENIRAMINE MALEATE
     Indication: Antiallergic therapy
     Dosage: 20 MG
     Route: 065
  5. CALAMINE [Suspect]
     Active Substance: CALAMINE\FERRIC OXIDE RED\ZINC OXIDE
     Indication: Symptomatic treatment
     Dosage: UNK
     Route: 061
  6. MUPIROCIN [Suspect]
     Active Substance: MUPIROCIN
     Indication: Symptomatic treatment
     Dosage: UNK
     Route: 061
  7. PHENOBARBITAL\PHENYTOIN [Concomitant]
     Active Substance: PHENOBARBITAL\PHENYTOIN
     Indication: Seizure
     Dosage: 1 DOSAGE FORM, QD COMBINATION FORMULATION ONCE AT NIGHT
     Route: 065

REACTIONS (2)
  - Condition aggravated [Recovering/Resolving]
  - Drug ineffective [Unknown]
